FAERS Safety Report 14309534 (Version 1)
Quarter: 2017Q4

REPORT INFORMATION
  Report Type: Spontaneous
  Country: CH (occurrence: CH)
  Receive Date: 20171220
  Receipt Date: 20171220
  Transmission Date: 20180321
  Serious: Yes (Hospitalization)
  Sender: FDA-Public Use
  Company Number: CH-OTSUKA-2017_026377

PATIENT
  Age: 41 Year
  Sex: Male

DRUGS (12)
  1. TEMESTA (LORAZEPAM) [Suspect]
     Active Substance: LORAZEPAM
     Indication: AGITATION
     Dosage: 0.5MG 1/DAY TO 2.5MG 3/DAY, ORALLY, AT HOME, START OF ADMINISTRATION UNKNOWN
     Route: 048
  2. MABTHERA [Suspect]
     Active Substance: RITUXIMAB
     Indication: MULTIPLE SCLEROSIS
     Dosage: TREATMENT WAS DIVIDED INTO 2 CYCLES ON 31 MAY AND 14 JUNE 2017 AT A DOSE OF 1000MG I.V. PER CYCLE
     Route: 042
     Dates: start: 20170531
  3. QUETIAPIN [Suspect]
     Active Substance: QUETIAPINE
     Indication: CONDUCT DISORDER
     Dosage: 125MG 3/DAY
     Route: 048
     Dates: start: 20170515, end: 20170828
  4. CITALOPRAM [Suspect]
     Active Substance: CITALOPRAM HYDROBROMIDE
     Indication: PRODUCT USED FOR UNKNOWN INDICATION
     Dosage: 300 MG, QD
     Route: 048
     Dates: start: 20170703, end: 20170816
  5. LIORESAL [Concomitant]
     Active Substance: BACLOFEN
     Indication: PRODUCT USED FOR UNKNOWN INDICATION
     Dosage: 5 MG X2/DAY + 10 MG/DAY
     Route: 048
     Dates: start: 20170321
  6. DAFALGAN [Concomitant]
     Active Substance: ACETAMINOPHEN
     Indication: PRODUCT USED FOR UNKNOWN INDICATION
     Dosage: 1000 MG X3/DAY
     Route: 048
  7. IRFEN [Concomitant]
     Active Substance: IBUPROFEN
     Indication: PRODUCT USED FOR UNKNOWN INDICATION
     Dosage: 400 MG X2/DAY
     Route: 065
     Dates: start: 20171011
  8. ORFIRIL [Suspect]
     Active Substance: VALPROATE SODIUM
     Indication: IMPULSIVE BEHAVIOUR
     Dosage: 300 MG, QD
     Route: 048
     Dates: start: 20170405, end: 20170704
  9. PURSANA [Concomitant]
     Active Substance: FIG FRUIT OIL\SORBITOL
     Indication: PRODUCT USED FOR UNKNOWN INDICATION
     Dosage: 15 ML X2/DAY
     Route: 048
  10. ABILIFY [Suspect]
     Active Substance: ARIPIPRAZOLE
     Indication: PRODUCT USED FOR UNKNOWN INDICATION
     Dosage: 20 MG, QD
     Route: 048
     Dates: start: 20170908
  11. RIVOTRIL [Suspect]
     Active Substance: CLONAZEPAM
     Indication: AGITATION
     Dosage: 0.5MG 1 AT 2/DAY
     Route: 048
     Dates: start: 20170817, end: 20171001
  12. VI-DE 3 [Concomitant]
     Active Substance: CHOLECALCIFEROL
     Indication: PRODUCT USED FOR UNKNOWN INDICATION
     Dosage: 800 UI/DAY PO
     Route: 065
     Dates: start: 20170905

REACTIONS (1)
  - Condition aggravated [Not Recovered/Not Resolved]

NARRATIVE: CASE EVENT DATE: 201710
